FAERS Safety Report 4273025-7 (Version None)
Quarter: 2004Q1

REPORT INFORMATION
  Report Type: 
  Country: None (occurrence: None)
  Receive Date: 20040114
  Receipt Date: 20031229
  Transmission Date: 20041129
  Serious: Yes (Hospitalization)
  Sender: FDA-Public Use
  Company Number: US060305

PATIENT
  Age: 23 Year
  Sex: Male

DRUGS (3)
  1. ENBREL [Suspect]
     Indication: PSORIATIC ARTHROPATHY
     Dosage: 25 MG, TWICE WEEKLY, SC
     Route: 058
     Dates: start: 20030301, end: 20031124
  2. CALCIPOTRIENE [Concomitant]
  3. IMIPRAMINE [Concomitant]

REACTIONS (3)
  - DIVERTICULAR PERFORATION [None]
  - DIVERTICULITIS [None]
  - PERITONITIS [None]
